FAERS Safety Report 5939587-6 (Version None)
Quarter: 2008Q4

REPORT INFORMATION
  Report Type: 
  Country: None (occurrence: None)
  Receive Date: 20081030
  Receipt Date: 20081016
  Transmission Date: 20090506
  Serious: Yes (Other)
  Sender: FDA-Public Use
  Company Number: TRP_05722_2008

PATIENT
  Sex: Male
  Weight: 96.6162 kg

DRUGS (2)
  1. RIBASPHERE [Suspect]
     Indication: HEPATITIS C
     Dosage: (600 MG BID ORAL)
     Route: 048
     Dates: start: 20080105
  2. PEGASYS [Suspect]
     Indication: HEPATITIS C
     Dosage: 1880 UG 1X/WEEK SUNBCUTANEOUS)
     Route: 058
     Dates: start: 20080105

REACTIONS (14)
  - ANAEMIA [None]
  - CONTUSION [None]
  - COUGH [None]
  - DYSPNOEA [None]
  - FATIGUE [None]
  - GAIT DISTURBANCE [None]
  - INCISION SITE PAIN [None]
  - INGUINAL HERNIA [None]
  - MOBILITY DECREASED [None]
  - PAIN [None]
  - POST PROCEDURAL COMPLICATION [None]
  - PROCEDURAL PAIN [None]
  - SLEEP DISORDER [None]
  - WHITE BLOOD CELL COUNT DECREASED [None]
